FAERS Safety Report 17915490 (Version 1)
Quarter: 2020Q2

REPORT INFORMATION
  Report Type: Report from Study
  Country: ES (occurrence: ES)
  Receive Date: 20200619
  Receipt Date: 20200619
  Transmission Date: 20200714
  Serious: Yes (Hospitalization)
  Sender: FDA-Public Use
  Company Number: ES-TEVA-2020-ES-1788682

PATIENT
  Age: 75 Year
  Sex: Female

DRUGS (6)
  1. PARACETAMOL (12A) [Concomitant]
     Active Substance: ACETAMINOPHEN
     Dosage: 1 GRAM
     Route: 048
  2. OMEPRAZOL (2141A) [Concomitant]
     Active Substance: OMEPRAZOLE
     Indication: PROPHYLAXIS
     Dosage: 20 MG
     Route: 048
  3. NOCTAMID 2 MG COMPRIMIDOS, 20 COMPRIMIDOS [Concomitant]
     Dosage: 2 MG
     Route: 048
  4. IBUPROFEN. [Interacting]
     Active Substance: IBUPROFEN
     Dosage: 600 MG
     Route: 048
     Dates: start: 2009, end: 20170102
  5. SIMVASTATINA (1023A) [Concomitant]
     Active Substance: SIMVASTATIN
     Indication: DYSLIPIDAEMIA
     Dosage: 20 MG
     Route: 048
     Dates: start: 2014, end: 20170102
  6. LOSARTAN (7157A) [Suspect]
     Active Substance: LOSARTAN
     Indication: HYPERTENSION
     Dosage: 50 MG
     Route: 048
     Dates: start: 20150122, end: 20170102

REACTIONS (2)
  - Drug interaction [Unknown]
  - Acute kidney injury [Recovered/Resolved]

NARRATIVE: CASE EVENT DATE: 20170101
